FAERS Safety Report 8133980-1 (Version None)
Quarter: 2012Q1

REPORT INFORMATION
  Report Type: 
  Country: None (occurrence: None)
  Receive Date: 20120213
  Receipt Date: 20120206
  Transmission Date: 20120608
  Serious: Yes (Other)
  Sender: FDA-Public Use
  Company Number: US-ASTRAZENECA-2012SE07871

PATIENT
  Sex: Female

DRUGS (2)
  1. SEROQUEL XR [Suspect]
     Route: 048
  2. SEROQUEL XR [Suspect]
     Indication: MAJOR DEPRESSION
     Route: 048

REACTIONS (8)
  - HAND FRACTURE [None]
  - DRUG DOSE OMISSION [None]
  - FALL [None]
  - DEPRESSION [None]
  - PARKINSONISM [None]
  - ABDOMINAL DISTENSION [None]
  - FATIGUE [None]
  - IMPAIRED DRIVING ABILITY [None]
